FAERS Safety Report 7116130-X (Version None)
Quarter: 2010Q4

REPORT INFORMATION
  Report Type: 
  Country: None (occurrence: None)
  Receive Date: 20101122
  Receipt Date: 20101109
  Transmission Date: 20110411
  Serious: Yes (Hospitalization, Other)
  Sender: FDA-Public Use
  Company Number: PHHO2010US17136

PATIENT
  Sex: Female
  Weight: 68 kg

DRUGS (13)
  1. DIOVAN [Suspect]
     Dosage: 160 MG
     Route: 048
     Dates: start: 20060101
  2. CALCITRIOL [Concomitant]
  3. COLECALCIFEROL [Concomitant]
  4. OMEPRAZOLE [Concomitant]
  5. EZETIMIBE [Concomitant]
  6. ZOCOR [Concomitant]
  7. ERGOCALCIFEROL [Concomitant]
  8. CARBAMAZEPINE [Concomitant]
  9. ALBUTEROL [Concomitant]
  10. HYDROCHLOROTHIAZIDE [Concomitant]
  11. HYDROCODONE BITARTRATE W/IBUPROFEN [Concomitant]
  12. LISINOPRIL [Concomitant]
  13. NIFEDIPINE [Concomitant]

REACTIONS (16)
  - AORTIC ARTERIOSCLEROSIS [None]
  - DILATATION ATRIAL [None]
  - DYSPNOEA [None]
  - ELECTROCARDIOGRAM T WAVE ABNORMAL [None]
  - EXTERNAL EAR PAIN [None]
  - FALL [None]
  - HEAD INJURY [None]
  - LEFT VENTRICULAR DYSFUNCTION [None]
  - LEFT VENTRICULAR HYPERTROPHY [None]
  - MUSCLE STRAIN [None]
  - MUSCULAR WEAKNESS [None]
  - MYOCARDIAL ISCHAEMIA [None]
  - NECK PAIN [None]
  - SINUS BRADYCARDIA [None]
  - SPINAL DISORDER [None]
  - SYNCOPE [None]
